FAERS Safety Report 8568979-4 (Version None)
Quarter: 2012Q3

REPORT INFORMATION
  Report Type: 
  Country: None (occurrence: None)
  Receive Date: 20120803
  Receipt Date: 20120213
  Transmission Date: 20120928
  Serious: No
  Sender: FDA-Public Use
  Company Number: US-ABBOTT-12P-163-0904803-00

PATIENT
  Sex: Male
  Weight: 99.88 kg

DRUGS (9)
  1. EYE DROPS [Concomitant]
     Indication: GLAUCOMA
  2. LEVOXYL [Concomitant]
     Indication: HYPOTHYROIDISM
  3. LIPITOR [Concomitant]
     Indication: BLOOD CHOLESTEROL INCREASED
  4. NIASPAN [Suspect]
     Dates: start: 20080301, end: 20110601
  5. NIASPAN [Suspect]
     Dates: start: 20071101, end: 20080301
  6. PLAVIX [Concomitant]
     Indication: ANTICOAGULANT THERAPY
  7. ASPIRIN [Concomitant]
     Indication: CARDIOVASCULAR EVENT PROPHYLAXIS
  8. NIASPAN [Suspect]
     Indication: BLOOD TRIGLYCERIDES INCREASED
     Dates: start: 20070801, end: 20071101
  9. METOPROLOL TARTRATE [Concomitant]
     Indication: HEART RATE DECREASED

REACTIONS (3)
  - DRUG INEFFECTIVE [None]
  - PRURITUS [None]
  - LABORATORY TEST ABNORMAL [None]
